FAERS Safety Report 25156361 (Version 2)
Quarter: 2025Q2

REPORT INFORMATION
  Report Type: Spontaneous
  Country: BR (occurrence: BR)
  Receive Date: 20250403
  Receipt Date: 20250409
  Transmission Date: 20250716
  Serious: Yes (Hospitalization, Other)
  Sender: BIOMARIN
  Company Number: BR-SANOFI-02464545

PATIENT

DRUGS (1)
  1. LARONIDASE [Suspect]
     Active Substance: LARONIDASE
     Indication: Mucopolysaccharidosis I
     Dosage: 10 DF, QOW
     Route: 042
     Dates: start: 20121130

REACTIONS (5)
  - Seizure [Recovered/Resolved]
  - Speech disorder [Recovering/Resolving]
  - Gait inability [Recovering/Resolving]
  - Feeding disorder [Recovering/Resolving]
  - Muscle spasms [Recovering/Resolving]

NARRATIVE: CASE EVENT DATE: 20150603
